FAERS Safety Report 9959725 (Version 1)
Quarter: 2014Q1

REPORT INFORMATION
  Report Type: Spontaneous
  Country: PL (occurrence: None)
  Receive Date: 20140227
  Receipt Date: 20140227
  Transmission Date: 20141002
  Serious: Yes (Other)
  Sender: FDA-Public Use
  Company Number: VAL_03000_2014

PATIENT
  Sex: Female

DRUGS (5)
  1. METOPROLOL (METOPROLOL TARTRATE) [Suspect]
     Indication: HYPERTENSION
     Dosage: (DF)
  2. METHYLDOPA [Suspect]
     Indication: HYPERTENSION
     Dosage: (DF)
  3. PREDNISONE [Suspect]
     Indication: PRODUCT USED FOR UNKNOWN INDICATION
  4. ENOXAPARIN (ENOXAPARIN) [Suspect]
     Indication: PRODUCT USED FOR UNKNOWN INDICATION
  5. THYROXINE [Suspect]
     Indication: PRODUCT USED FOR UNKNOWN INDICATION
     Dosage: (DF)

REACTIONS (5)
  - Maternal exposure during pregnancy [None]
  - Blood pressure increased [None]
  - Proteinuria [None]
  - Hepatic enzyme increased [None]
  - Caesarean section [None]
